FAERS Safety Report 23723110 (Version 1)
Quarter: 2024Q2

REPORT INFORMATION
  Report Type: Spontaneous
  Country: US (occurrence: None)
  Receive Date: 20240409
  Receipt Date: 20240409
  Transmission Date: 20240715
  Serious: No
  Sender: FDA-Public Use
  Company Number: None

PATIENT

DRUGS (2)
  1. ISAVUCONAZOLE [Suspect]
     Active Substance: ISAVUCONAZOLE
  2. ITRACONAZOLE [Suspect]
     Active Substance: ITRACONAZOLE

REACTIONS (3)
  - Product selection error [None]
  - Wrong product administered [None]
  - Product name confusion [None]
